FAERS Safety Report 7790043-2 (Version None)
Quarter: 2011Q3

REPORT INFORMATION
  Report Type: 
  Country: None (occurrence: None)
  Receive Date: 20110930
  Receipt Date: 20110304
  Transmission Date: 20111222
  Serious: No
  Sender: FDA-Public Use
  Company Number: US-ASTRAZENECA-2011SE12259

PATIENT
  Sex: Female

DRUGS (3)
  1. ARIMIDEX [Suspect]
     Route: 048
  2. SIMVASTATIN [Suspect]
     Indication: HYPERCHOLESTEROLAEMIA
     Route: 065
  3. ACTONEL [Suspect]
     Route: 065

REACTIONS (10)
  - MYALGIA [None]
  - PLANTAR FASCIITIS [None]
  - ALOPECIA [None]
  - WEIGHT LOSS POOR [None]
  - FATIGUE [None]
  - DEPRESSION [None]
  - TRIGGER FINGER [None]
  - CARPAL TUNNEL SYNDROME [None]
  - AMNESIA [None]
  - BLOOD CHOLESTEROL INCREASED [None]
